FAERS Safety Report 8084812-1 (Version None)
Quarter: 2012Q1

REPORT INFORMATION
  Report Type: 
  Country: None (occurrence: None)
  Receive Date: 20120128
  Receipt Date: 20110315
  Transmission Date: 20120608
  Serious: No
  Sender: FDA-Public Use
  Company Number: US-ABBOTT-11P-163-0712600-00

PATIENT
  Sex: Male
  Weight: 107.6 kg

DRUGS (7)
  1. FOLIC ACID [Concomitant]
     Indication: VITAMIN SUPPLEMENTATION
  2. HUMIRA [Suspect]
     Indication: CROHN'S DISEASE
     Dates: start: 20110104, end: 20110304
  3. LISINOPRIL [Concomitant]
     Indication: HYPERTENSION
  4. METFFORMIN HYDROCHLORIDE [Concomitant]
     Indication: DIABETES MELLITUS
  5. PREDNISONE TAB [Concomitant]
     Indication: COLITIS ULCERATIVE
  6. CANASA [Concomitant]
     Indication: COLITIS ULCERATIVE
  7. METHOTREXATE [Concomitant]
     Indication: COLITIS ULCERATIVE

REACTIONS (1)
  - DYSPNOEA [None]
